FAERS Safety Report 15496267 (Version 2)
Quarter: 2018Q4

REPORT INFORMATION
  Report Type: Other
  Country: CN (occurrence: CN)
  Receive Date: 20181012
  Receipt Date: 20181018
  Transmission Date: 20190205
  Serious: Yes (Other)
  Sender: FDA-Public Use
  Company Number: CN-ARALEZ PHARMACEUTICALS R+D INC.-2018-ARA-002557

PATIENT
  Sex: Male
  Weight: 70 kg

DRUGS (1)
  1. METOPROLOL SUCCINATE. [Suspect]
     Active Substance: METOPROLOL SUCCINATE
     Indication: CONGESTIVE CARDIOMYOPATHY
     Dosage: 23.75 MG, QD
     Route: 048
     Dates: start: 20180413, end: 20180513

REACTIONS (1)
  - Ventricular arrhythmia [Recovering/Resolving]
